FAERS Safety Report 7248455-1 (Version None)
Quarter: 2011Q1

REPORT INFORMATION
  Report Type: 
  Country: None (occurrence: None)
  Receive Date: 20110127
  Receipt Date: 20110124
  Transmission Date: 20110831
  Serious: Yes (Death, Other)
  Sender: FDA-Public Use
  Company Number: CO-PFIZER INC-2011017643

PATIENT
  Age: 75 Year
  Sex: Female

DRUGS (2)
  1. LYRICA [Suspect]
     Indication: PAIN
     Dosage: UNK
     Route: 048
     Dates: start: 20110117
  2. MORPHINE [Concomitant]
     Dosage: UNK

REACTIONS (4)
  - SPEECH DISORDER [None]
  - NAUSEA [None]
  - MALAISE [None]
  - MYOCARDIAL INFARCTION [None]
